FAERS Safety Report 5360242-8 (Version None)
Quarter: 2007Q2

REPORT INFORMATION
  Report Type: 
  Country: None (occurrence: None)
  Receive Date: 20070618
  Receipt Date: 20070607
  Transmission Date: 20071010
  Serious: Yes (Other)
  Sender: FDA-Public Use
  Company Number: DE-ELI_LILLY_AND_COMPANY-DE200702002967

PATIENT
  Sex: Male

DRUGS (12)
  1. ZYPREXA [Suspect]
     Indication: SCHIZOPHRENIA, PARANOID TYPE
     Dosage: 20 MG, UNK
     Route: 048
     Dates: start: 19970320, end: 19970324
  2. ZYPREXA [Suspect]
     Dosage: 20 MG, UNK
     Route: 048
     Dates: start: 19970325, end: 19970401
  3. ZYPREXA [Suspect]
     Dosage: 20 MG, UNK
     Route: 048
     Dates: start: 19970402, end: 19970408
  4. ZYPREXA [Suspect]
     Dosage: 20 MG, UNK
     Route: 048
     Dates: start: 19970409, end: 19970423
  5. ZYPREXA [Suspect]
     Dosage: 15 MG, UNK
     Route: 048
     Dates: start: 19970424, end: 19970427
  6. LOPRESSOR [Concomitant]
  7. FLURAZEPAM HCL [Concomitant]
     Dosage: 15 MG, UNK
  8. LORAZEPAM [Concomitant]
  9. RISPERIDONE [Concomitant]
  10. BENPERIDOL [Concomitant]
  11. FLUSPIRILENE [Concomitant]
  12. FLUPENTIXOL [Concomitant]

REACTIONS (3)
  - DIABETES MELLITUS [None]
  - DIABETIC NEPHROPATHY [None]
  - WEIGHT INCREASED [None]
